FAERS Safety Report 23687435 (Version 1)
Quarter: 2024Q1

REPORT INFORMATION
  Report Type: Spontaneous
  Country: US (occurrence: US)
  Receive Date: 20240329
  Receipt Date: 20240329
  Transmission Date: 20240410
  Serious: Yes (Other)
  Sender: FDA-Public Use
  Company Number: US-PFIZER INC-202400074042

PATIENT
  Age: 62 Year
  Sex: Female

DRUGS (15)
  1. IBRANCE [Suspect]
     Active Substance: PALBOCICLIB
     Dosage: 125 MG TABLETS - 1 TABLET DAILY ON DAYS 1 THROUGH 21 OF EACH 28 DAY CYCLE
     Dates: start: 2020
  2. CALTRATE 600+D PLUS [Concomitant]
  3. LANSOPRAZOLE [Concomitant]
     Active Substance: LANSOPRAZOLE
  4. ADVIL [Concomitant]
     Active Substance: IBUPROFEN
  5. PAXLOVID [Concomitant]
     Active Substance: NIRMATRELVIR\RITONAVIR
  6. ESTRACE [Concomitant]
     Active Substance: ESTRADIOL
  7. LOSARTAN [Concomitant]
     Active Substance: LOSARTAN
  8. POTASSIUM [Concomitant]
     Active Substance: POTASSIUM
  9. ATORVASTATIN CALCIUM [Concomitant]
     Active Substance: ATORVASTATIN CALCIUM
  10. VENLAFAXINE HCL [Concomitant]
     Active Substance: VENLAFAXINE HYDROCHLORIDE
  11. FASLODEX [Concomitant]
     Active Substance: FULVESTRANT
  12. TYLENOL [Concomitant]
     Active Substance: ACETAMINOPHEN
  13. VITAMIN E [Concomitant]
     Active Substance: .ALPHA.-TOCOPHEROL
  14. ALLEGRA D [FEXOFENADINE;PSEUDOEPHEDRINE HYDROCHLORIDE] [Concomitant]
  15. VITAMIN D3 [Concomitant]
     Active Substance: CHOLECALCIFEROL

REACTIONS (2)
  - Device breakage [Unknown]
  - COVID-19 [Unknown]

NARRATIVE: CASE EVENT DATE: 20220701
